FAERS Safety Report 8282761 (Version 4)
Quarter: 2012Q4

REPORT INFORMATION
  Report Type: 
  Country: JP (occurrence: JP)
  Receive Date: 20111209
  Receipt Date: 20121001
  Transmission Date: 20130627
  Serious: Yes (Other)
  Sender: FDA-Public Use
  Company Number: JP-ROCHE-1018760

PATIENT
  Age: 81 Year
  Sex: Female
  Weight: 46 kg

DRUGS (5)
  1. AVASTIN [Suspect]
     Indication: COLON CANCER RECURRENT
     Dosage: Dosage is uncertain.
     Route: 041
     Dates: start: 20100714, end: 20111011
  2. XELODA [Suspect]
     Indication: COLON CANCER RECURRENT
     Dosage: Dosage is uncertain.
     Route: 048
     Dates: start: 20100714, end: 20101001
  3. XELODA [Suspect]
     Indication: COLON CANCER RECURRENT
     Dosage: Dosage is uncertain.
     Route: 048
     Dates: start: 20101112, end: 20111011
  4. ELPLAT [Suspect]
     Indication: COLON CANCER RECURRENT
     Dosage: Dosage is uncertain.
     Route: 041
     Dates: start: 20100714, end: 20100725
  5. MAGLAX [Concomitant]
     Route: 048
     Dates: start: 20090727, end: 20120114

REACTIONS (8)
  - Cerebral haemorrhage [Recovered/Resolved]
  - Hypertension [Recovered/Resolved]
  - Neutrophil count decreased [Recovered/Resolved]
  - Neutrophil count decreased [Recovered/Resolved]
  - Dementia with Lewy bodies [Unknown]
  - Hallucination [Unknown]
  - Gait disturbance [Unknown]
  - Balance disorder [Unknown]
